FAERS Safety Report 8997786 (Version 2)
Quarter: 2013Q1

REPORT INFORMATION
  Report Type: Spontaneous
  Country: DE (occurrence: DE)
  Receive Date: 20130104
  Receipt Date: 20130218
  Transmission Date: 20140127
  Serious: Yes (Death, Life-Threatening, Hospitalization)
  Sender: FDA-Public Use
  Company Number: DE-MPIJNJ-2013-00098

PATIENT
  Sex: 0

DRUGS (2)
  1. VELCADE [Suspect]
     Indication: MANTLE CELL LYMPHOMA
     Dosage: 1.3 MG/M2, UNK
     Route: 042
     Dates: start: 20121203, end: 20121207
  2. CYTARABINE [Suspect]
     Indication: MANTLE CELL LYMPHOMA
     Route: 065

REACTIONS (1)
  - Intestinal perforation [Fatal]
